FAERS Safety Report 21963605 (Version 2)
Quarter: 2023Q1

REPORT INFORMATION
  Report Type: Spontaneous
  Country: None (occurrence: FR)
  Receive Date: 20230207
  Receipt Date: 20230208
  Transmission Date: 20230418
  Serious: Yes (Other)
  Sender: FDA-Public Use
  Company Number: FR-AFSSAPS-ST2023000043

PATIENT
  Age: 66 Year
  Sex: Male

DRUGS (3)
  1. OXYGEN [Suspect]
     Active Substance: OXYGEN
     Indication: Lung neoplasm malignant
     Route: 055
     Dates: start: 20221209, end: 20221222
  2. ENOXAPARIN [Concomitant]
     Active Substance: ENOXAPARIN
  3. Previscan [Concomitant]

REACTIONS (2)
  - Cold burn [Not Recovered/Not Resolved]
  - Necrosis [Not Recovered/Not Resolved]

NARRATIVE: CASE EVENT DATE: 20221213
